FAERS Safety Report 14028582 (Version 2)
Quarter: 2017Q4

REPORT INFORMATION
  Report Type: Spontaneous
  Country: US (occurrence: US)
  Receive Date: 20170930
  Receipt Date: 20171009
  Transmission Date: 20180321
  Serious: Yes (Hospitalization)
  Sender: FDA-Public Use
  Company Number: US-SA-2017SA055824

PATIENT
  Age: 62 Year
  Sex: Female

DRUGS (11)
  1. PERCOCET [Concomitant]
     Active Substance: ACETAMINOPHEN\OXYCODONE HYDROCHLORIDE
     Dosage: 5 MG-325MG
  2. AUBAGIO [Suspect]
     Active Substance: TERIFLUNOMIDE
     Indication: MULTIPLE SCLEROSIS
     Route: 048
     Dates: start: 2016
  3. ZANAFLEX [Concomitant]
     Active Substance: TIZANIDINE HYDROCHLORIDE
     Dosage: STRENGTH: 4 MG
  4. MIRAPEX [Concomitant]
     Active Substance: PRAMIPEXOLE DIHYDROCHLORIDE
     Dosage: STRENGTH: 1 MG
  5. FLONASE [Concomitant]
     Active Substance: FLUTICASONE PROPIONATE
  6. FLOVENT [Concomitant]
     Active Substance: FLUTICASONE PROPIONATE
     Dosage: FLOVENT HFA 220 MCG AER W/ADAP,
  7. CALCIUM [Concomitant]
     Active Substance: CALCIUM
     Dosage: STRENGTH: 600 MG
  8. CARVEDILOL. [Concomitant]
     Active Substance: CARVEDILOL
     Dosage: STRENGTH: 12.5
  9. PANTOPRAZOLE SODIUM. [Concomitant]
     Active Substance: PANTOPRAZOLE SODIUM
     Dosage: STRENGTH: 40 MG
  10. VITAMIN D3 [Concomitant]
     Active Substance: CHOLECALCIFEROL
     Dosage: 50000 UNITS
  11. LYRICA [Suspect]
     Active Substance: PREGABALIN
     Dosage: STRENGTH: 150 MG
     Route: 065
     Dates: end: 2017

REACTIONS (13)
  - Pyrexia [Recovered/Resolved]
  - Pain [Recovered/Resolved]
  - Sputum discoloured [Recovered/Resolved]
  - Productive cough [Recovered/Resolved]
  - Musculoskeletal chest pain [Recovered/Resolved]
  - Fall [Unknown]
  - Oedema peripheral [Recovered/Resolved]
  - Nausea [Recovered/Resolved]
  - Peripheral swelling [Recovered/Resolved]
  - Influenza [Recovered/Resolved]
  - Femur fracture [Unknown]
  - Joint swelling [Recovered/Resolved]
  - Haemoptysis [Recovered/Resolved]

NARRATIVE: CASE EVENT DATE: 201601
